FAERS Safety Report 4573844-3 (Version None)
Quarter: 2005Q1

REPORT INFORMATION
  Report Type: 
  Country: None (occurrence: None)
  Receive Date: 20050208
  Receipt Date: 20041022
  Transmission Date: 20050727
  Serious: Yes (Death)
  Sender: FDA-Public Use
  Company Number: PHNU2004DE03618

PATIENT
  Age: 44 Year
  Sex: Male

DRUGS (3)
  1. INTERFERON ALFA [Concomitant]
     Indication: CHRONIC MYELOID LEUKAEMIA
     Route: 065
  2. LITALIR [Concomitant]
     Indication: CHRONIC MYELOID LEUKAEMIA
     Route: 048
  3. GLIVEC [Suspect]
     Indication: CHRONIC MYELOID LEUKAEMIA
     Dosage: UNK, UNK
     Route: 048

REACTIONS (4)
  - CARDIAC ARREST [None]
  - NEOPLASM PROGRESSION [None]
  - PERSONALITY CHANGE [None]
  - SOMNOLENCE [None]
